FAERS Safety Report 20854544 (Version 1)
Quarter: 2022Q2

REPORT INFORMATION
  Report Type: Spontaneous
  Country: US (occurrence: US)
  Receive Date: 20220520
  Receipt Date: 20220520
  Transmission Date: 20220721
  Serious: Yes (Other)
  Sender: FDA-Public Use
  Company Number: US-BEH-2022145630

PATIENT
  Age: 60 Year
  Sex: Male
  Weight: 57 kg

DRUGS (3)
  1. PROTHROMBIN COMPLEX CONCENTRATE NOS [Suspect]
     Active Substance: COAGULATION FACTOR IX HUMAN\COAGULATION FACTOR VII HUMAN\COAGULATION FACTOR X HUMAN\PROTHROMBIN
     Indication: Procoagulant therapy
     Dosage: 50 INTERNATIONAL UNIT/KILOGRAM
     Route: 065
  2. APIXABAN [Concomitant]
     Active Substance: APIXABAN
     Indication: Atrial fibrillation
     Route: 065
  3. ANDEXANET ALFA [Suspect]
     Active Substance: ANDEXANET ALFA
     Indication: Subdural haematoma
     Route: 065

REACTIONS (8)
  - Ischaemic stroke [Unknown]
  - Pulmonary embolism [Unknown]
  - Renal infarct [Unknown]
  - Hepatic infarction [Unknown]
  - Splenic infarction [Unknown]
  - No adverse event [Unknown]
  - Off label use [Unknown]
  - Respiratory failure [Unknown]
